FAERS Safety Report 7679523-8 (Version None)
Quarter: 2011Q3

REPORT INFORMATION
  Report Type: 
  Country: None (occurrence: None)
  Receive Date: 20110812
  Receipt Date: 20110801
  Transmission Date: 20111222
  Serious: Yes (Other)
  Sender: FDA-Public Use
  Company Number: DE-UCBSA-036974

PATIENT
  Sex: Female

DRUGS (4)
  1. ALCOHOL [Suspect]
     Dosage: UNKNOWN AMOUNT
     Dates: start: 20110701, end: 20110701
  2. LEVOCETIRIZINE DIHYDROCHLORIDE [Suspect]
     Dosage: 5MG , 6 TABLET, TOTAL AMOUNT:30 MG
     Dates: start: 20110701, end: 20110701
  3. CEFACLOR [Suspect]
     Dosage: 500 MG, 20 TABLETS, TOTAL AMOUNT:10,000MG
     Dates: start: 20110701, end: 20110701
  4. DICLOFENAC SODIUM [Suspect]
     Dosage: 50 MG, 18 CAPSULE, TOTAL AMOUNT:900 MG
     Dates: start: 20110701, end: 20110701

REACTIONS (2)
  - FATIGUE [None]
  - SUICIDE ATTEMPT [None]
